FAERS Safety Report 23278487 (Version 1)
Quarter: 2023Q4

REPORT INFORMATION
  Report Type: Spontaneous
  Country: US (occurrence: US)
  Receive Date: 20231208
  Receipt Date: 20231208
  Transmission Date: 20240110
  Serious: Yes (Other)
  Sender: FDA-Public Use
  Company Number: US-AMERICAN REGENT INC-2023002497

PATIENT
  Age: 68 Year
  Sex: Female

DRUGS (3)
  1. VENOFER [Suspect]
     Active Substance: IRON SUCROSE
     Indication: Iron metabolism disorder
     Dosage: 300 MILLIGRAM, SINGLE
     Route: 042
     Dates: start: 20230831, end: 20230831
  2. VENOFER [Suspect]
     Active Substance: IRON SUCROSE
     Dosage: 300 MILLIGRAM, SINGLE
     Route: 042
     Dates: start: 20230914, end: 20230914
  3. VENOFER [Suspect]
     Active Substance: IRON SUCROSE
     Dosage: 400 MILLIGRAM, SINGLE
     Route: 042
     Dates: start: 20230928, end: 20230928

REACTIONS (3)
  - Abdominal pain [Recovered/Resolved]
  - Off label use [Unknown]
  - Incorrect product administration duration [Unknown]

NARRATIVE: CASE EVENT DATE: 20230831
